FAERS Safety Report 15190246 (Version 1)
Quarter: 2018Q3

REPORT INFORMATION
  Report Type: Spontaneous
  Country: US (occurrence: US)
  Receive Date: 20180724
  Receipt Date: 20180724
  Transmission Date: 20181010
  Serious: Yes (Other)
  Sender: FDA-Public Use
  Company Number: US-PERRIGO-18US007204

PATIENT
  Age: 14 Year
  Sex: Female
  Weight: 50.79 kg

DRUGS (1)
  1. LICE SHAMPOO [Suspect]
     Active Substance: PIPERONYL BUTOXIDE\PYRETHRUM EXTRACT
     Indication: LICE INFESTATION
     Dosage: 240 ML, SINGLE
     Route: 061
     Dates: start: 20180709, end: 20180709

REACTIONS (5)
  - Ocular hyperaemia [Not Recovered/Not Resolved]
  - Eyelid margin crusting [Not Recovered/Not Resolved]
  - Eyelid oedema [Not Recovered/Not Resolved]
  - Chemical burns of eye [Not Recovered/Not Resolved]
  - Chemical eye injury [Not Recovered/Not Resolved]

NARRATIVE: CASE EVENT DATE: 20180709
